FAERS Safety Report 12321116 (Version 3)
Quarter: 2016Q2

REPORT INFORMATION
  Report Type: Spontaneous
  Country: GB (occurrence: GB)
  Receive Date: 20160502
  Receipt Date: 20160530
  Transmission Date: 20160815
  Serious: Yes (Other)
  Sender: FDA-Public Use
  Company Number: GB-009507513-1603GBR009308

PATIENT
  Age: 44 Year
  Sex: Female

DRUGS (6)
  1. EPIRUBICIN [Suspect]
     Active Substance: EPIRUBICIN
     Indication: CHEMOTHERAPY
     Dosage: 100 MG/M2, UNK
  2. CYCLOPHOSPHAMIDE. [Suspect]
     Active Substance: CYCLOPHOSPHAMIDE
     Indication: CHEMOTHERAPY
     Dosage: 500 MG/M2, UNK
  3. NEULASTA [Suspect]
     Active Substance: PEGFILGRASTIM
  4. APREPITANT. [Suspect]
     Active Substance: APREPITANT
     Dosage: UNK
     Route: 048
  5. FLUOROURACIL. [Suspect]
     Active Substance: FLUOROURACIL
     Indication: CHEMOTHERAPY
     Dosage: 500 MG/M2, UNK
  6. PALONOSETRON HYDROCHLORIDE. [Suspect]
     Active Substance: PALONOSETRON HYDROCHLORIDE
     Dosage: UNK

REACTIONS (15)
  - Oral pain [Unknown]
  - Myalgia [Unknown]
  - Haemorrhage [Unknown]
  - Pain in extremity [Unknown]
  - Asthenia [Unknown]
  - Pain of skin [Unknown]
  - Paraesthesia [Unknown]
  - Nausea [Unknown]
  - Productive cough [Unknown]
  - Mouth ulceration [Unknown]
  - Alopecia [Unknown]
  - Fatigue [Unknown]
  - Constipation [Unknown]
  - Dysstasia [Unknown]
  - Dysgeusia [Unknown]

NARRATIVE: CASE EVENT DATE: 201603
